FAERS Safety Report 4686455-6 (Version None)
Quarter: 2005Q2

REPORT INFORMATION
  Report Type: 
  Country: None (occurrence: None)
  Receive Date: 20050606
  Receipt Date: 20050525
  Transmission Date: 20051028
  Serious: Yes (Death, Other)
  Sender: FDA-Public Use
  Company Number: 2005064571

PATIENT
  Sex: Female

DRUGS (12)
  1. BEXTRA [Suspect]
     Indication: PAIN
     Dosage: 10 MG (10 MG , 1 IN 1 D), ORAL
     Route: 048
  2. FENTANYL [Suspect]
     Indication: PAIN
     Dosage: TRANSDERMAL
     Route: 062
     Dates: end: 20050405
  3. INDOMETHACIN [Concomitant]
  4. ALLOPURINOL [Concomitant]
  5. AMIODARONE HCL [Concomitant]
  6. GLYBURIDE [Concomitant]
  7. WARFARIN SODIUM [Concomitant]
  8. METOLAZONE [Concomitant]
  9. DIGOXIN [Concomitant]
  10. ATENOLOL [Concomitant]
  11. BUPROPION (BUPROPION) [Concomitant]
  12. CETIRIZINE (CETIRIZINE) [Concomitant]

REACTIONS (3)
  - ACUTE MYOCARDIAL INFARCTION [None]
  - CARDIAC ARREST [None]
  - WRONG TECHNIQUE IN DRUG USAGE PROCESS [None]
